FAERS Safety Report 5277738-X (Version None)
Quarter: 2007Q1

REPORT INFORMATION
  Report Type: 
  Country: None (occurrence: None)
  Receive Date: 20070321
  Receipt Date: 20070307
  Transmission Date: 20070707
  Serious: Yes (Life-Threatening, Hospitalization, Other)
  Sender: FDA-Public Use
  Company Number: VER_0045_2007

PATIENT
  Age: 29 Year
  Sex: Female

DRUGS (7)
  1. EPINEPHRINE [Suspect]
     Indication: EYELID OEDEMA
     Dosage: 0.1 MG/ML ONCE IV
     Route: 042
  2. EPINEPHRINE [Suspect]
     Indication: LIP SWELLING
     Dosage: 0.1 MG/ML ONCE IV
     Route: 042
  3. EPINEPHRINE [Suspect]
     Indication: RESPIRATORY DISTRESS
     Dosage: 0.1 MG/ML ONCE IV
     Route: 042
  4. EPINEPHRINE [Suspect]
     Indication: SWELLING FACE
     Dosage: 0.1 MG/ML ONCE IV
     Route: 042
  5. DIPHENHYDRAMINE HCL [Concomitant]
  6. METHYLPREDNISOLONE 16MG TAB [Concomitant]
  7. CIMETIDINE HCL [Concomitant]

REACTIONS (5)
  - ACUTE MYOCARDIAL INFARCTION [None]
  - ARTERIOSPASM CORONARY [None]
  - EXTRASYSTOLES [None]
  - HEART RATE INCREASED [None]
  - MYOCARDIAL ISCHAEMIA [None]
